FAERS Safety Report 20175060 (Version 10)
Quarter: 2022Q4

REPORT INFORMATION
  Report Type: Other
  Country: DE (occurrence: DE)
  Receive Date: 20211213
  Receipt Date: 20221007
  Transmission Date: 20230113
  Serious: Yes (Hospitalization, Other)
  Sender: FDA-Public Use
  Company Number: DE-MACLEODS PHARMACEUTICALS US LTD-MAC2021033660

PATIENT

DRUGS (59)
  1. PANTOPRAZOLE SODIUM [Suspect]
     Active Substance: PANTOPRAZOLE SODIUM
     Indication: Abdominal discomfort
     Dosage: 20 MILLIGRAM, QD, STOP DATE: MAY 2017
     Route: 065
  2. CANDESARTAN [Suspect]
     Active Substance: CANDESARTAN
     Indication: Blood pressure abnormal
     Dosage: 32 MILLIGRAM, QD, STOP DATE: FEB 2021
     Route: 065
  3. TAMSULOSIN [Suspect]
     Active Substance: TAMSULOSIN
     Indication: Prostate infection
     Dosage: 0.4 MILLIGRAM, QD
     Route: 065
  4. CARVEDILOL [Suspect]
     Active Substance: CARVEDILOL
     Indication: Blood pressure abnormal
     Dosage: 25 MILLIGRAM, QD, (? -0-0), MEDICATION ERROR
     Route: 065
  5. CARVEDILOL [Suspect]
     Active Substance: CARVEDILOL
     Indication: Product used for unknown indication
     Dosage: 25 MILLIGRAM, QD, (1-0-0), MEDICATION ERROR
     Route: 065
  6. CARVEDILOL [Suspect]
     Active Substance: CARVEDILOL
     Dosage: 25 MILLIGRAM, BID,  (? -0-1-0), MEDICATION ERROR
     Route: 065
  7. CARVEDILOL [Suspect]
     Active Substance: CARVEDILOL
     Dosage: 25 MILLIGRAM, BID, (0-0-1-0), MEDICATION ERROR
     Route: 065
  8. CARVEDILOL [Suspect]
     Active Substance: CARVEDILOL
     Dosage: UNK. TABLET
     Route: 065
  9. COTRIMOXAZOLE [Suspect]
     Active Substance: SULFAMETHOXAZOLE\TRIMETHOPRIM
     Indication: Product used for unknown indication
     Dosage: 480 MILLIGRAM
     Route: 065
  10. COTRIMOXAZOLE [Suspect]
     Active Substance: SULFAMETHOXAZOLE\TRIMETHOPRIM
     Dosage: UNK
     Route: 065
  11. HYGROTON [Suspect]
     Active Substance: CHLORTHALIDONE
     Indication: Blood pressure abnormal
     Dosage: 0.5 DOSAGE FORM, QD
     Route: 065
  12. DIGITOXIN [Suspect]
     Active Substance: DIGITOXIN
     Indication: Cardiac disorder
     Dosage: 1 DOSAGE FORM, QD, (NOT ON SUNDAYS)
     Route: 065
  13. DIGITOXIN [Suspect]
     Active Substance: DIGITOXIN
     Indication: Product used for unknown indication
     Dosage: UNK
     Route: 065
  14. AMPHO-MORONAL [Suspect]
     Active Substance: AMPHOTERICIN B
     Indication: Product used for unknown indication
     Dosage: 1 DOSAGE FORM, TID
     Route: 065
  15. TAMSULOSIN HYDROCHLORIDE [Suspect]
     Active Substance: TAMSULOSIN HYDROCHLORIDE
     Indication: Prostate infection
     Dosage: 0.4 MILLIGRAM, QD
     Route: 065
  16. TACROLIMUS [Suspect]
     Active Substance: TACROLIMUS
     Indication: Transplant
     Dosage: 1 MILLIGRAM, BID, 1 MG, Q12H (1 MG, UNKNOWN FREQ)
     Route: 065
  17. TACROLIMUS [Suspect]
     Active Substance: TACROLIMUS
     Dosage: 0.5 MILLIGRAM, BID 0.5 MG, Q12H (0.5 MG, TWICE DAILY)
     Route: 065
  18. TACROLIMUS [Suspect]
     Active Substance: TACROLIMUS
     Dosage: UNK
     Route: 065
  19. FUROSEMIDE [Suspect]
     Active Substance: FUROSEMIDE
     Indication: Fluid retention
     Dosage: 40 MILLIGRAM, PRN
     Route: 065
  20. ARANESP [Suspect]
     Active Substance: DARBEPOETIN ALFA
     Indication: Product used for unknown indication
     Dosage: 10 MILLIGRAM, Q.W.
     Route: 065
  21. PROGRAF [Suspect]
     Active Substance: TACROLIMUS
     Indication: Transplant
     Dosage: 1 MILLIGRAM, (1.0 MG) STOP DATE IN 2018
     Route: 065
  22. PROGRAF [Suspect]
     Active Substance: TACROLIMUS
     Indication: Prostate infection
     Dosage: 0.5 MILLIGRAM, BID, EVERY 12 HRS
     Route: 065
  23. PROGRAF [Suspect]
     Active Substance: TACROLIMUS
     Dosage: 1 MILLIGRAM, BID (EVERY 12 HOURS)
     Route: 065
  24. PROGRAF [Suspect]
     Active Substance: TACROLIMUS
     Dosage: 0.4 MILLIGRAM, QD
     Route: 065
  25. MARCUMAR [Suspect]
     Active Substance: PHENPROCOUMON
     Indication: Cardiac disorder
     Dosage: 0.5 DOSAGE FORM
     Route: 065
  26. MARCUMAR [Suspect]
     Active Substance: PHENPROCOUMON
     Indication: Anticoagulant therapy
     Dosage: UNK (0-0-?-0 -1)
     Route: 048
  27. MARCUMAR [Suspect]
     Active Substance: PHENPROCOUMON
     Dosage: UNK
     Route: 065
  28. VALCYTE [Suspect]
     Active Substance: VALGANCICLOVIR HYDROCHLORIDE
     Indication: Product used for unknown indication
     Dosage: 450 MILLIGRAM, QD
     Route: 065
  29. NITRENDIPINE [Suspect]
     Active Substance: NITRENDIPINE
     Indication: Blood pressure abnormal
     Dosage: 20 MILLIGRAM (IN THE MORNING AFTER ABOUT 1 TO 2 HOURS)
     Route: 065
  30. NITRENDIPINE [Suspect]
     Active Substance: NITRENDIPINE
     Indication: Blood pressure measurement
     Dosage: 10 MILLIGRAM, BID (20 MG DAILY)
     Route: 065
  31. NITRENDIPINE [Suspect]
     Active Substance: NITRENDIPINE
     Dosage: 2 DOSAGE FORM, QD, (20 MG)
     Route: 065
  32. NITRENDIPINE [Suspect]
     Active Substance: NITRENDIPINE
     Dosage: 40 MILLIGRAM, QD (20 MG, BID)
     Route: 065
  33. NITRENDIPINE [Suspect]
     Active Substance: NITRENDIPINE
     Dosage: 40 MILLIGRAM
     Route: 065
  34. NITRENDIPINE [Suspect]
     Active Substance: NITRENDIPINE
     Dosage: 40 MILLIGRAM, QD (20 MG, BID)
     Route: 065
  35. FLUVASTATIN [Suspect]
     Active Substance: FLUVASTATIN SODIUM
     Indication: Blood cholesterol abnormal
     Dosage: UNK (MEDICATION ERROR)
     Route: 065
  36. DOXAZOSIN [Suspect]
     Active Substance: DOXAZOSIN MESYLATE
     Indication: Hypertension
     Dosage: 4 MILLIGRAM, TID, (?-2-2-0)
     Route: 065
  37. DOXAZOSIN [Suspect]
     Active Substance: DOXAZOSIN MESYLATE
     Indication: Blood pressure abnormal
     Dosage: 16 MILLIGRAM, QD 8 MG, BID (RETARD)SUSTAINED RELEASE
     Route: 065
  38. DOXAZOSIN [Suspect]
     Active Substance: DOXAZOSIN MESYLATE
     Dosage: 8 MG (2 AND 1/2)
     Route: 065
  39. DOXAZOSIN [Suspect]
     Active Substance: DOXAZOSIN MESYLATE
     Dosage: 2 DOSAGE FORM, QD,(8 MG),
     Route: 065
  40. DOXAZOSIN [Suspect]
     Active Substance: DOXAZOSIN MESYLATE
     Dosage: 8 MG (2 AND 1/2)
     Route: 065
  41. DOXAZOSIN [Suspect]
     Active Substance: DOXAZOSIN MESYLATE
     Dosage: 16 MILLIGRAM, QD (8 MG, BID (0-1-0-1))
     Route: 065
  42. DOXAZOSIN [Suspect]
     Active Substance: DOXAZOSIN MESYLATE
     Dosage: 16 MILLIGRAM
     Route: 065
  43. DOXAZOSIN [Suspect]
     Active Substance: DOXAZOSIN MESYLATE
     Dosage: 16 MILLIGRAM, QD (8 MG, BID (0-2-0-0))
     Route: 065
  44. CALCIUM CARBONATE\CHOLECALCIFEROL [Suspect]
     Active Substance: CALCIUM CARBONATE\CHOLECALCIFEROL
     Indication: Product used for unknown indication
     Dosage: 1 DOSAGE FORM, BID (2 {DF})
     Route: 065
  45. CHOLECALCIFEROL [Suspect]
     Active Substance: CHOLECALCIFEROL
     Indication: Product used for unknown indication
     Dosage: UNK
     Route: 065
  46. FERROUS GLYCINE SULFATE [Suspect]
     Active Substance: FERROUS GLYCINE SULFATE
     Indication: Product used for unknown indication
     Dosage: 100 MILLIGRAM, QD
     Route: 065
  47. SODIUM BICARBONATE [Suspect]
     Active Substance: SODIUM BICARBONATE
     Indication: Product used for unknown indication
     Dosage: 1 GRAM, QD
     Route: 065
  48. CANDESARTAN CILEXETIL [Suspect]
     Active Substance: CANDESARTAN CILEXETIL
     Indication: Blood pressure abnormal
     Dosage: 32 MILLIGRAM, QD
     Route: 065
  49. CANDESARTAN CILEXETIL [Suspect]
     Active Substance: CANDESARTAN CILEXETIL
     Dosage: 32 MILLIGRAM, QD, TABLET
     Route: 065
  50. CANDESARTAN CILEXETIL [Suspect]
     Active Substance: CANDESARTAN CILEXETIL
     Dosage: 32 MILLIGRAM, QD, TABLET (STOP DATE: FEB 2021)
     Route: 065
  51. CANDESARTAN CILEXETIL [Suspect]
     Active Substance: CANDESARTAN CILEXETIL
     Dosage: UNK
     Route: 065
  52. MYFORTIC [Suspect]
     Active Substance: MYCOPHENOLATE SODIUM
     Indication: Transplant
     Dosage: 1 DOSAGE FORM, BID (2 DF QD)
     Route: 065
  53. TORSEMIDE [Suspect]
     Active Substance: TORSEMIDE
     Indication: Product used for unknown indication
     Dosage: 0.5 DOSAGE FORM, QD
     Route: 065
  54. SODIUM BICARBONATE [Suspect]
     Active Substance: SODIUM BICARBONATE
     Indication: Product used for unknown indication
     Dosage: 1 GRAM, QD (BICANORM)
     Route: 065
  55. VALGANCICLOVIR HYDROCHLORIDE [Suspect]
     Active Substance: VALGANCICLOVIR HYDROCHLORIDE
     Indication: Product used for unknown indication
     Dosage: 450 MILLIGRAM, QD (VALCYTE)
     Route: 065
     Dates: start: 20140801, end: 20140801
  56. CHOLECALCIFEROL [Suspect]
     Active Substance: CHOLECALCIFEROL
     Indication: Product used for unknown indication
     Dosage: UNK
     Route: 065
  57. CHOLECALCIFEROL [Suspect]
     Active Substance: CHOLECALCIFEROL
     Dosage: UNK
     Route: 065
  58. CHOLECALCIFEROL [Suspect]
     Active Substance: CHOLECALCIFEROL
     Dosage: UNK
     Route: 065
  59. MINOXIDIL [Suspect]
     Active Substance: MINOXIDIL
     Indication: Blood pressure management
     Dosage: UNK, QD (2.5, TID (1-1-1))
     Route: 065

REACTIONS (75)
  - Renal artery stenosis [Unknown]
  - Atrial fibrillation [Not Recovered/Not Resolved]
  - Bradycardia [Unknown]
  - Arteriosclerosis [Unknown]
  - Basal cell carcinoma [Recovered/Resolved]
  - Hepatic steatosis [Unknown]
  - Vena cava injury [Unknown]
  - Blood pressure fluctuation [Unknown]
  - Squamous cell carcinoma of skin [Recovered/Resolved]
  - Left ventricular hypertrophy [Unknown]
  - Thrombosis [Unknown]
  - Delayed graft function [Unknown]
  - Carotid arteriosclerosis [Unknown]
  - Arteriosclerosis [Unknown]
  - Chronic kidney disease [Unknown]
  - Aortic dilatation [Unknown]
  - Actinic keratosis [Unknown]
  - Swelling [Unknown]
  - Atrioventricular block first degree [Unknown]
  - Blood 25-hydroxycholecalciferol decreased [Recovered/Resolved]
  - Hyperparathyroidism secondary [Unknown]
  - Pancreatic cystadenoma [Unknown]
  - Hypertension [Unknown]
  - Aortic arteriosclerosis [Unknown]
  - Rectal prolapse [Unknown]
  - Renal cyst haemorrhage [Not Recovered/Not Resolved]
  - Vertigo [Unknown]
  - C-reactive protein increased [Unknown]
  - Metabolic acidosis [Unknown]
  - Red blood cell count decreased [Recovered/Resolved]
  - Benign prostatic hyperplasia [Unknown]
  - Myalgia [Unknown]
  - Dizziness [Unknown]
  - Intervertebral disc space narrowing [Unknown]
  - Haemoglobin decreased [Recovered/Resolved]
  - Overdose [Unknown]
  - Restlessness [Unknown]
  - Haemorrhoids [Unknown]
  - Restless legs syndrome [Unknown]
  - Hepatosplenomegaly [Unknown]
  - Haemorrhage [Unknown]
  - COVID-19 [Unknown]
  - Presyncope [Unknown]
  - Abdominal wall haemorrhage [Unknown]
  - Oedema peripheral [Unknown]
  - Activated partial thromboplastin time prolonged [Unknown]
  - Blood potassium increased [Unknown]
  - Diverticulum intestinal [Unknown]
  - Glycosylated haemoglobin increased [Unknown]
  - Atrial fibrillation [Unknown]
  - Incorrect dose administered [Unknown]
  - Vitamin D decreased [Recovered/Resolved]
  - Activated partial thromboplastin time prolonged [Unknown]
  - Fear [Unknown]
  - Mean cell volume increased [Unknown]
  - Complications of transplanted kidney [Unknown]
  - Perineal cyst [Unknown]
  - Spinal stenosis [Unknown]
  - Aortic valve incompetence [Unknown]
  - Pulmonary hypertension [Unknown]
  - Spinal osteoarthritis [Unknown]
  - Vascular anastomotic haemorrhage [Unknown]
  - Mean cell volume increased [Recovered/Resolved]
  - Vascular compression [Unknown]
  - Swelling face [Unknown]
  - Glycosylated haemoglobin increased [Unknown]
  - Oedema peripheral [Unknown]
  - Renal cyst [Unknown]
  - Diverticulum intestinal [Unknown]
  - Gastrooesophageal reflux disease [Unknown]
  - Large intestine polyp [Unknown]
  - Swelling of eyelid [Unknown]
  - Headache [Unknown]
  - Insomnia [Unknown]
  - Drug ineffective [Unknown]

NARRATIVE: CASE EVENT DATE: 20140205
